FAERS Safety Report 4269416-0 (Version None)
Quarter: 2004Q1

REPORT INFORMATION
  Report Type: 
  Country: None (occurrence: None)
  Receive Date: 20040112
  Receipt Date: 20040112
  Transmission Date: 20041129
  Serious: Yes (Life-Threatening)
  Sender: FDA-Public Use
  Company Number: None

PATIENT
  Age: 51 Year
  Sex: Male

DRUGS (5)
  1. ZOSYN [Suspect]
     Indication: SEPSIS
     Dosage: 3.375 GMQ 6 H
  2. FLAGYL [Concomitant]
  3. DSNS [Concomitant]
  4. LASIX [Concomitant]
  5. INSULIN [Concomitant]

REACTIONS (1)
  - CONVULSION [None]
